FAERS Safety Report 7364434-8 (Version None)
Quarter: 2011Q1

REPORT INFORMATION
  Report Type: 
  Country: None (occurrence: None)
  Receive Date: 20110315
  Receipt Date: 20110315
  Transmission Date: 20110831
  Serious: No
  Sender: FDA-Public Use
  Company Number: None

PATIENT
  Age: 62 Year
  Sex: Female

DRUGS (2)
  1. FERAHEME [Suspect]
     Indication: IRON DEFICIENCY ANAEMIA
     Dosage: 510 MG EVERY WEEK IV BOLUS
     Route: 040
     Dates: start: 20110215, end: 20110222
  2. FERAHEME [Suspect]
     Indication: IRON DEFICIENCY ANAEMIA
     Dosage: 510 MG EVERY WEEK IV BOLUS
     Route: 040
     Dates: start: 20101102, end: 20101109

REACTIONS (4)
  - DEAFNESS UNILATERAL [None]
  - EAR DISCOMFORT [None]
  - HYPOAESTHESIA [None]
  - TINNITUS [None]
